FAERS Safety Report 6021320-3 (Version None)
Quarter: 2008Q4

REPORT INFORMATION
  Report Type: 
  Country: None (occurrence: None)
  Receive Date: 20081229
  Receipt Date: 20081223
  Transmission Date: 20090506
  Serious: Yes (Congenital Anomaly)
  Sender: FDA-Public Use
  Company Number: A0662915A

PATIENT
  Sex: Male

DRUGS (2)
  1. PAXIL [Suspect]
     Indication: ANXIETY
  2. PAROXETINE HCL [Suspect]
     Indication: ANXIETY

REACTIONS (4)
  - CONGENITAL AORTIC ATRESIA [None]
  - DRUG EXPOSURE DURING PREGNANCY [None]
  - HYPOPLASTIC LEFT HEART SYNDROME [None]
  - VENTRICULAR SEPTAL DEFECT [None]
